FAERS Safety Report 25578640 (Version 6)
Quarter: 2025Q4

REPORT INFORMATION
  Report Type: Spontaneous
  Country: US (occurrence: US)
  Receive Date: 20250718
  Receipt Date: 20251016
  Transmission Date: 20260117
  Serious: Yes (Other)
  Sender: IPSEN BIOPHARMACEUTICALS, INC.
  Company Number: US-IPSEN Group, Research and Development-2025-17005

PATIENT
  Age: 80 Year
  Sex: Male
  Weight: 100 kg

DRUGS (23)
  1. TAZVERIK [Suspect]
     Active Substance: TAZEMETOSTAT HYDROBROMIDE
     Indication: Non-Hodgkin^s lymphoma
     Route: 048
     Dates: start: 20240802
  2. TAZVERIK [Suspect]
     Active Substance: TAZEMETOSTAT HYDROBROMIDE
     Indication: Off label use
  3. Calcium 600 + D3 [Concomitant]
     Dosage: 600-10M
     Route: 048
  4. HEMPVANA PAIN RELIEF [Concomitant]
  5. Salonpas External Patch [Concomitant]
     Dosage: PATCH, 3.1-6-10%
  6. ALEVE [Concomitant]
     Active Substance: NAPROXEN SODIUM
     Route: 048
  7. NORCO [Concomitant]
     Active Substance: ACETAMINOPHEN\HYDROCODONE BITARTRATE
     Dosage: 10-325MG
     Route: 048
  8. SERTRALINE HYDROCHLORIDE [Concomitant]
     Active Substance: SERTRALINE HYDROCHLORIDE
     Route: 048
  9. Polyethylene Glycol 600 [Concomitant]
  10. VITAMINS [Concomitant]
     Active Substance: VITAMINS
     Route: 048
  11. LOPERAMIDE HYDROCHLORIDE [Concomitant]
     Active Substance: LOPERAMIDE HYDROCHLORIDE
     Route: 048
  12. FINASTERIDE [Concomitant]
     Active Substance: FINASTERIDE
     Route: 048
  13. EPIPEN [Concomitant]
     Active Substance: EPINEPHRINE
     Dosage: INJCTION SOLUTION AUT
  14. XANAX [Concomitant]
     Active Substance: ALPRAZOLAM
     Route: 048
  15. ACETAMINOPHEN [Concomitant]
     Active Substance: ACETAMINOPHEN
     Route: 048
  16. ASPIRIN [Concomitant]
     Active Substance: ASPIRIN
     Dosage: DELAYED RELEASE
     Route: 048
  17. CLINDAMYCIN HYDROCHLORIDE [Concomitant]
     Active Substance: CLINDAMYCIN HYDROCHLORIDE
     Route: 048
  18. SINGULAIR [Concomitant]
     Active Substance: MONTELUKAST SODIUM
  19. TAMSULOSIN [Concomitant]
     Active Substance: TAMSULOSIN
  20. Ocuvite Eye + Multi ORAL TABLET [Concomitant]
     Route: 048
  21. CVS Vitamin B12 [Concomitant]
     Route: 048
  22. MIRALAX [Concomitant]
     Active Substance: POLYETHYLENE GLYCOL 3350
  23. CALCIUM [Concomitant]
     Active Substance: CALCIUM

REACTIONS (2)
  - Parkinson^s disease [Not Recovered/Not Resolved]
  - Off label use [Unknown]

NARRATIVE: CASE EVENT DATE: 20240802
